FAERS Safety Report 20268325 (Version 2)
Quarter: 2022Q2

REPORT INFORMATION
  Report Type: Report from Study
  Country: FR (occurrence: None)
  Receive Date: 20211231
  Receipt Date: 20220517
  Transmission Date: 20220721
  Serious: Yes (Hospitalization)
  Sender: FDA-Public Use
  Company Number: FR-ROCHE-2990306

PATIENT
  Age: 76 Year
  Sex: Male

DRUGS (2)
  1. ATEZOLIZUMAB [Suspect]
     Active Substance: ATEZOLIZUMAB
     Indication: Neoplasm
     Dosage: CUMULATIVE DOSE ATEZOLIZUMAB: 15600 MG
     Route: 041
     Dates: start: 20200507, end: 20200507
  2. RUCAPARIB [Suspect]
     Active Substance: RUCAPARIB
     Indication: Neoplasm
     Dosage: CUMULATIVE DOSE RUCAPARIB: 282 200 MG
     Route: 042
     Dates: start: 20190808, end: 20200507

REACTIONS (1)
  - Anaemia [Recovered/Resolved]

NARRATIVE: CASE EVENT DATE: 20200529
